FAERS Safety Report 12745143 (Version 1)
Quarter: 2016Q3

REPORT INFORMATION
  Report Type: Report from Study
  Country: FR (occurrence: FR)
  Receive Date: 20160915
  Receipt Date: 20160915
  Transmission Date: 20161109
  Serious: Yes (Hospitalization, Other)
  Sender: FDA-Public Use
  Company Number: FR-ROCHE-1828205

PATIENT
  Sex: Female

DRUGS (4)
  1. CORTANCYL [Concomitant]
     Active Substance: PREDNISONE
     Route: 065
  2. CORTANCYL [Concomitant]
     Active Substance: PREDNISONE
     Route: 065
  3. RITUXIMAB [Suspect]
     Active Substance: RITUXIMAB
     Indication: RHEUMATOID ARTHRITIS
     Dosage: 28 MAR 2007 (DAY 15)
     Route: 041
     Dates: start: 20070315
  4. RITUXIMAB [Suspect]
     Active Substance: RITUXIMAB
     Route: 042
     Dates: start: 20090526

REACTIONS (14)
  - Meniscal degeneration [Unknown]
  - Back pain [Recovered/Resolved]
  - Urinary tract infection [Recovered/Resolved]
  - Arthralgia [Not Recovered/Not Resolved]
  - Rhinitis [Recovered/Resolved]
  - Strongyloidiasis [Not Recovered/Not Resolved]
  - Synovitis [Unknown]
  - Arthralgia [Not Recovered/Not Resolved]
  - Radicular pain [Recovered/Resolved]
  - Ear infection [Recovered/Resolved]
  - Osteoarthritis [Unknown]
  - Knee arthroplasty [Unknown]
  - Renal neoplasm [Not Recovered/Not Resolved]
  - Pharyngitis [Recovered/Resolved]

NARRATIVE: CASE EVENT DATE: 200706
